FAERS Safety Report 6840659-2 (Version None)
Quarter: 2010Q3

REPORT INFORMATION
  Report Type: 
  Country: None (occurrence: None)
  Receive Date: 20100713
  Receipt Date: 20100713
  Transmission Date: 20110219
  Serious: Yes (Hospitalization)
  Sender: FDA-Public Use
  Company Number: None

PATIENT
  Age: 58 Year
  Sex: Male
  Weight: 105 kg

DRUGS (2)
  1. ALIMTA [Suspect]
     Indication: NON-SMALL CELL LUNG CANCER
     Dosage: ALIMTA Q21 DAYS IV
     Route: 042
     Dates: start: 20100707
  2. CISPLATIN [Suspect]
     Indication: NON-SMALL CELL LUNG CANCER
     Dosage: CISPLATIN Q21 DAYS IV
     Route: 042
     Dates: start: 20100707

REACTIONS (2)
  - DYSPNOEA [None]
  - PAIN [None]
